FAERS Safety Report 9171387 (Version 2)
Quarter: 2013Q1

REPORT INFORMATION
  Report Type: Spontaneous
  Country: US (occurrence: None)
  Receive Date: 20130207
  Receipt Date: 20130228
  Transmission Date: 20140127
  Serious: Yes (Other)
  Sender: FDA-Public Use
  Company Number: 2013034592

PATIENT
  Sex: Female

DRUGS (1)
  1. IMMUNE GLOBULIN NOS [Suspect]
     Dosage: 100 MG/KG 1X/WEEK, FROM 18TH WEEK UNTIL END OF GESTATION INTRAVENOUS (NOT OTHERWISE SPECIFIED)
     Route: 042

REACTIONS (2)
  - Meningitis aseptic [None]
  - Malaise [None]
